FAERS Safety Report 25470749 (Version 1)
Quarter: 2025Q2

REPORT INFORMATION
  Report Type: Spontaneous
  Country: US (occurrence: US)
  Receive Date: 20250624
  Receipt Date: 20250624
  Transmission Date: 20250717
  Serious: No
  Sender: MERCK SHARP & DOHME LLC
  Company Number: US-009507513-2298867

PATIENT
  Age: 4 Year
  Weight: 20.9 kg

DRUGS (1)
  1. POSACONAZOLE [Suspect]
     Active Substance: POSACONAZOLE
     Indication: Antifungal prophylaxis
     Route: 048

REACTIONS (2)
  - Product use issue [Unknown]
  - Wrong technique in product usage process [Unknown]
